FAERS Safety Report 6999307-3 (Version None)
Quarter: 2010Q3

REPORT INFORMATION
  Report Type: 
  Country: None (occurrence: None)
  Receive Date: 20100920
  Receipt Date: 20091105
  Transmission Date: 20110219
  Serious: Yes (Other)
  Sender: FDA-Public Use
  Company Number: US-ASTRAZENECA-2008UW27458

PATIENT
  Age: 15479 Day
  Sex: Female

DRUGS (9)
  1. SEROQUEL [Suspect]
     Indication: DEPRESSION
     Dosage: 200 MG, 300 MG
     Route: 048
     Dates: start: 20061201, end: 20080213
  2. SEROQUEL [Suspect]
     Indication: BIPOLAR DISORDER
     Dosage: 200 MG, 300 MG
     Route: 048
     Dates: start: 20061201, end: 20080213
  3. CLONAZEPAM [Concomitant]
     Indication: BIPOLAR DISORDER
     Dates: start: 20060317
  4. CLONAZEPAM [Concomitant]
     Indication: DEPRESSION
     Dates: start: 20060317
  5. ABILIFY [Concomitant]
     Indication: BIPOLAR DISORDER
     Dates: start: 20081101
  6. ABILIFY [Concomitant]
     Indication: DEPRESSION
     Dates: start: 20081101
  7. LITHIUM CARBONATE [Concomitant]
     Indication: BIPOLAR DISORDER
     Dates: start: 20061213
  8. LITHIUM CARBONATE [Concomitant]
     Indication: DEPRESSION
     Dates: start: 20061213
  9. HYDROCODINE [Concomitant]
     Dates: start: 20070101

REACTIONS (2)
  - DIABETES MELLITUS [None]
  - PANCREATITIS [None]
